FAERS Safety Report 11299231 (Version 1)
Quarter: 2015Q3

REPORT INFORMATION
  Report Type: Spontaneous
  Country: US (occurrence: US)
  Receive Date: 20150722
  Receipt Date: 20150722
  Transmission Date: 20151125
  Serious: No
  Sender: FDA-Public Use
  Company Number: US-ELI_LILLY_AND_COMPANY-US201207006617

PATIENT
  Sex: Male
  Weight: 90.7 kg

DRUGS (6)
  1. EFFIENT [Suspect]
     Active Substance: PRASUGREL HYDROCHLORIDE
     Dosage: 5 MG, QD
  2. ASPIRIN. [Concomitant]
     Active Substance: ASPIRIN
     Dosage: UNK, QD
  3. POTASSIUM [Concomitant]
     Active Substance: POTASSIUM
     Dosage: UNK, UNKNOWN
  4. SIMVASTATIN. [Concomitant]
     Active Substance: SIMVASTATIN
     Dosage: UNK, UNKNOWN
  5. DILAUDID [Concomitant]
     Active Substance: HYDROMORPHONE HYDROCHLORIDE
     Dosage: UNK, UNKNOWN
  6. EFFIENT [Suspect]
     Active Substance: PRASUGREL HYDROCHLORIDE
     Indication: STENT PLACEMENT
     Dosage: 10 MG, QD
     Dates: start: 201206

REACTIONS (14)
  - Blood pressure increased [Unknown]
  - Haemorrhage [Unknown]
  - Tinnitus [Unknown]
  - Wrong technique in product usage process [Recovered/Resolved]
  - Eructation [Unknown]
  - Wound [Unknown]
  - Hypoacusis [Unknown]
  - Food allergy [Unknown]
  - Skin disorder [Unknown]
  - Feeling hot [Unknown]
  - Gastrointestinal infection [Unknown]
  - Limb injury [Unknown]
  - Drug interaction [Unknown]
  - Erythema [Unknown]
